FAERS Safety Report 8375007-2 (Version None)
Quarter: 2012Q2

REPORT INFORMATION
  Report Type: 
  Country: None (occurrence: None)
  Receive Date: 20120521
  Receipt Date: 20120508
  Transmission Date: 20120825
  Serious: Yes (Hospitalization)
  Sender: FDA-Public Use
  Company Number: CA-ROCHE-1069076

PATIENT
  Sex: Male

DRUGS (5)
  1. APO-SALVENT [Concomitant]
  2. SPIRIVA [Concomitant]
  3. SYMBICORT [Concomitant]
  4. XOLAIR [Suspect]
     Indication: ASTHMA
     Route: 058
     Dates: start: 20111109
  5. SINGULAIR [Concomitant]

REACTIONS (3)
  - PRODUCTIVE COUGH [None]
  - PNEUMONIA [None]
  - LUNG INFECTION [None]
